FAERS Safety Report 9455134 (Version 1)
Quarter: 2013Q3

REPORT INFORMATION
  Report Type: Spontaneous
  Country: US (occurrence: US)
  Receive Date: 20130813
  Receipt Date: 20130813
  Transmission Date: 20140515
  Serious: No
  Sender: FDA-Public Use
  Company Number: US-B.I. PHARMACEUTICALS,INC./RIDGEFIELD-2013-BI-23730BP

PATIENT
  Sex: Female

DRUGS (4)
  1. COMBIVENT [Suspect]
     Indication: BRONCHITIS CHRONIC
     Dosage: STRENGTH: 20 MCG / 100 MCG; DAILY DOSE: 80 MCG / 400 MCG
     Route: 055
     Dates: start: 2013
  2. COMBIVENT [Suspect]
     Indication: ASTHMA
  3. COMBIVENT [Suspect]
     Indication: BRONCHITIS CHRONIC
     Dosage: STRENGTH: 18 MCG / 103 MCG;
     Route: 055
  4. COMBIVENT [Suspect]
     Indication: ASTHMA

REACTIONS (1)
  - Off label use [Unknown]
